FAERS Safety Report 5183850-6 (Version None)
Quarter: 2006Q4

REPORT INFORMATION
  Report Type: 
  Country: None (occurrence: None)
  Receive Date: 20061220
  Receipt Date: 20061213
  Transmission Date: 20070319
  Serious: Yes (Hospitalization)
  Sender: FDA-Public Use
  Company Number: PT-GLAXOSMITHKLINE-B0451117A

PATIENT
  Age: 56 Year
  Sex: Female

DRUGS (1)
  1. TRIZIVIR [Suspect]
     Indication: SYSTEMIC ANTIVIRAL TREATMENT
     Route: 048
     Dates: start: 20060823, end: 20061212

REACTIONS (2)
  - ANAEMIA [None]
  - LEUKOPENIA [None]
